FAERS Safety Report 5201365-3 (Version None)
Quarter: 2006Q4

REPORT INFORMATION
  Report Type: 
  Country: None (occurrence: None)
  Receive Date: 20061016
  Receipt Date: 20060705
  Transmission Date: 20070319
  Serious: Yes (Other)
  Sender: FDA-Public Use
  Company Number: 28736

PATIENT
  Age: 61 Year
  Sex: Female
  Weight: 63.5036 kg

DRUGS (1)
  1. FLUPHENAZINE DECANOATE [Suspect]
     Indication: SCHIZOPHRENIA
     Dosage: 4ML
     Dates: start: 19860101

REACTIONS (4)
  - ABNORMAL DREAMS [None]
  - INSOMNIA [None]
  - MUSCLE SPASMS [None]
  - PAIN [None]
